FAERS Safety Report 20013215 (Version 1)
Quarter: 2021Q4

REPORT INFORMATION
  Report Type: Spontaneous
  Country: AU (occurrence: AU)
  Receive Date: 20211029
  Receipt Date: 20211029
  Transmission Date: 20220303
  Serious: Yes (Other)
  Sender: FDA-Public Use
  Company Number: AU-ANIPHARMA-2021-AU-000342

PATIENT
  Sex: Female

DRUGS (14)
  1. CANDESARTAN CILEXETIL [Suspect]
     Active Substance: CANDESARTAN CILEXETIL
     Indication: Product used for unknown indication
     Dosage: 8 MG UNK
     Route: 065
  2. CINNARIZINE [Suspect]
     Active Substance: CINNARIZINE
     Route: 065
  3. BOTOX [Suspect]
     Active Substance: ONABOTULINUMTOXINA
     Dosage: 8 MG UNK
     Route: 065
  4. ESTRADIOL VALERATE [Suspect]
     Active Substance: ESTRADIOL VALERATE
     Route: 065
  5. PRAMIPEXOLE [Suspect]
     Active Substance: PRAMIPEXOLE
     Route: 065
  6. TOPIRAMATE [Suspect]
     Active Substance: TOPIRAMATE
     Route: 065
  7. QUETIAPINE FUMARATE [Suspect]
     Active Substance: QUETIAPINE FUMARATE
     Route: 065
  8. EPILIM [Suspect]
     Active Substance: VALPROATE SODIUM
     Route: 065
  9. MAGNESIUM [Suspect]
     Active Substance: MAGNESIUM
     Route: 065
  10. AMITRIPTYLINE HYDROCHLORIDE [Suspect]
     Active Substance: AMITRIPTYLINE HYDROCHLORIDE
     Route: 065
  11. ERGOCALCIFEROL [Suspect]
     Active Substance: ERGOCALCIFEROL
     Route: 065
  12. ZONISAMIDE [Suspect]
     Active Substance: ZONISAMIDE
     Dosage: 50 MG UNK
     Route: 065
  13. PIZOTYLINE [Suspect]
     Active Substance: PIZOTYLINE
     Route: 065
  14. LAMOTRIGINE [Suspect]
     Active Substance: LAMOTRIGINE
     Route: 065

REACTIONS (10)
  - Therapeutic product effect decreased [Unknown]
  - Restless legs syndrome [Unknown]
  - Bipolar disorder [Unknown]
  - Endometrial cancer [Unknown]
  - Loss of personal independence in daily activities [Unknown]
  - Vertigo [Unknown]
  - Therapeutic response changed [Unknown]
  - Vestibular migraine [Unknown]
  - Weight increased [Unknown]
  - Migraine [Unknown]
